FAERS Safety Report 8960764 (Version 3)
Quarter: 2013Q4

REPORT INFORMATION
  Report Type: Spontaneous
  Country: US (occurrence: US)
  Receive Date: 20121213
  Receipt Date: 20131227
  Transmission Date: 20140711
  Serious: Yes (Death, Other)
  Sender: FDA-Public Use
  Company Number: US-AMGEN-USASP2012079176

PATIENT
  Age: 84 Year
  Sex: Female

DRUGS (2)
  1. PROLIA [Suspect]
     Indication: OSTEOPOROSIS POSTMENOPAUSAL
     Dosage: UNK
     Route: 065
     Dates: start: 20121204
  2. PREDNISONE [Concomitant]
     Dosage: UNK

REACTIONS (4)
  - Sudden death [Fatal]
  - Arrhythmia [Unknown]
  - Myocardial infarction [Unknown]
  - Cerebrovascular accident [Unknown]
